FAERS Safety Report 13820374 (Version 5)
Quarter: 2019Q2

REPORT INFORMATION
  Report Type: Spontaneous
  Country: US (occurrence: US)
  Receive Date: 20170801
  Receipt Date: 20190521
  Transmission Date: 20190711
  Serious: Yes (Hospitalization)
  Sender: FDA-Public Use
  Company Number: US-PFIZER INC-2017324500

PATIENT
  Age: 61 Year
  Sex: Male

DRUGS (36)
  1. CEROVITE [Concomitant]
     Active Substance: FOLIC ACID\IRON
     Dosage: UNK, 1X/DAY
     Dates: start: 20110318
  2. ATROPINE/ DIPHENOXYLATE [Concomitant]
     Dosage: 2 DF, AS NEEDED [2 TABLET (S) EVERY 6 HOURS]
     Route: 048
  3. SODIUM BICARBONATE. [Concomitant]
     Active Substance: SODIUM BICARBONATE
     Dosage: UNK UNK, 3X/DAY [10 GR TAB , RIS 3 X DAILY]
  4. CEROVITE [Concomitant]
     Active Substance: FOLIC ACID\IRON
     Dosage: 1 DF, DAILY
     Route: 048
  5. ATIVAN [Concomitant]
     Active Substance: LORAZEPAM
     Indication: TREMOR
     Dosage: 1 MG, AS NEEDED [EVERY 6 HOURS]
     Route: 048
  6. FLUTICASONE. [Concomitant]
     Active Substance: FLUTICASONE
     Dosage: 50 UG, AS NEEDED [1 SPRAY (S) TWICE A DAY]
     Route: 045
  7. OPIUM TINCTURE [Concomitant]
     Active Substance: MORPHINE
     Indication: DIARRHOEA
     Dosage: 4 MG, AS NEEDED (FOUR TIMES A DAY)
     Route: 048
  8. HEPARIN [Concomitant]
     Active Substance: HEPARIN SODIUM
     Dosage: 25 IU, AS NEEDED
     Route: 042
  9. PROMETHAZINE [Concomitant]
     Active Substance: PROMETHAZINE\PROMETHAZINE HYDROCHLORIDE
     Dosage: 12.5 MG, AS NEEDED [EVERY 6 HOURS]
     Route: 048
  10. SERTRALINE [Concomitant]
     Active Substance: SERTRALINE HYDROCHLORIDE
     Dosage: 50 MG, 1X/DAY
     Dates: start: 20110318
  11. PANCRELIPASE. [Concomitant]
     Active Substance: PANCRELIPASE
     Indication: ENZYME SUPPLEMENTATION
     Dosage: 4 DF, DAILY
     Route: 048
  12. ACETAMINOPHEN. [Concomitant]
     Active Substance: ACETAMINOPHEN
     Dosage: 325 MG, AS NEEDED [325 MG EVERY 6 HOURS]
     Route: 048
  13. RAPAMUNE [Suspect]
     Active Substance: SIROLIMUS
     Indication: ORGAN TRANSPLANT
  14. PANCRELIPASE. [Concomitant]
     Active Substance: PANCRELIPASE
     Dosage: 3 DF, DAILY (TAKE 2 CAPSULES WITH MEALS AND 1 CAPSULE WITH SNACKS)
  15. ASPIRIN. [Concomitant]
     Active Substance: ASPIRIN
     Dosage: 81 MG, DAILY
     Route: 048
  16. TESTOSTERONE. [Concomitant]
     Active Substance: TESTOSTERONE
     Dosage: (200 EVERY 2 WEEKS)
     Route: 030
  17. CALCITRIOL. [Concomitant]
     Active Substance: CALCITRIOL
     Dosage: 0.25 UG, DAILY
     Route: 048
  18. ZOLOFT [Concomitant]
     Active Substance: SERTRALINE HYDROCHLORIDE
     Dosage: 50 MG, DAILY
     Route: 048
  19. RAPAMUNE [Suspect]
     Active Substance: SIROLIMUS
     Indication: IMMUNOSUPPRESSANT DRUG THERAPY
     Dosage: 5 MG, DAILY
     Route: 048
     Dates: start: 20110318
  20. IMURAN [Concomitant]
     Active Substance: AZATHIOPRINE
     Indication: IMMUNOSUPPRESSANT DRUG THERAPY
     Dosage: 50 MG, DAILY
     Route: 048
  21. EPIVIR [Concomitant]
     Active Substance: LAMIVUDINE
     Dosage: 100 MG, DAILY [TAKE AT 1800]
     Route: 048
  22. FLUOXETINE [Concomitant]
     Active Substance: FLUOXETINE HYDROCHLORIDE
     Dosage: 50 MG, 2X/DAY
  23. ASPIRIN. [Concomitant]
     Active Substance: ASPIRIN
     Dosage: 81 MG, 1X/DAY
     Dates: start: 20110318
  24. URSODIOL. [Concomitant]
     Active Substance: URSODIOL
     Dosage: 300 MG, 2X/DAY
     Route: 048
  25. VANCOMYCIN [Concomitant]
     Active Substance: VANCOMYCIN
     Dosage: 750 MG, DAILY
     Route: 042
  26. FIORINAL [Concomitant]
     Active Substance: ASPIRIN\BUTALBITAL\CAFFEINE
     Indication: HEADACHE
     Dosage: 2 DF, AS NEEDED (THREE TIMES A DAY)
     Route: 048
  27. IMODIUM [Concomitant]
     Active Substance: LOPERAMIDE HYDROCHLORIDE
     Dosage: 2 MG, AS NEEDED (2 MG FOUR TIMES A DAY)
     Route: 048
  28. FLEXERIL [Concomitant]
     Active Substance: CYCLOBENZAPRINE HYDROCHLORIDE
     Indication: MUSCLE SPASMS
     Dosage: 10 MG, AS NEEDED [TWICE A DAY]
     Route: 048
  29. SIMETHICON [Concomitant]
     Active Substance: DIMETHICONE
     Dosage: 160 MG, AS NEEDED (EVERY 6 HOURS)
     Route: 048
  30. ZOFRAN [Concomitant]
     Active Substance: ONDANSETRON HYDROCHLORIDE
     Dosage: 4 MG, AS NEEDED [EVERY HOURS]
     Route: 048
  31. PHENYLEPHRINE [Concomitant]
     Active Substance: PHENYLEPHRINE\PHENYLEPHRINE HYDROCHLORIDE
     Dosage: AS NEEDED [DAILY]
     Route: 061
  32. OXYCODONE [Concomitant]
     Active Substance: OXYCODONE
     Dosage: 10 MG, AS NEEDED (EVERY 6 HOURS)
     Route: 048
  33. RAPAMUNE [Suspect]
     Active Substance: SIROLIMUS
     Indication: INTESTINAL TRANSPLANT
     Dosage: 4 MG, DAILY
     Route: 048
  34. LEVOTHYROXINE. [Concomitant]
     Active Substance: LEVOTHYROXINE
     Dosage: 75 UG, DAILY (TAKE AT 1800)
     Route: 048
  35. MIDODRINE [Concomitant]
     Active Substance: MIDODRINE
     Dosage: 10 MG, 3X/DAY
     Route: 048
  36. AMBIEN [Concomitant]
     Active Substance: ZOLPIDEM TARTRATE
     Dosage: 5 MG, AS NEEDED [AT BEDTIME]
     Route: 048

REACTIONS (4)
  - Off label use [Not Recovered/Not Resolved]
  - Tremor [Unknown]
  - Product use in unapproved indication [Not Recovered/Not Resolved]
  - Nerve compression [Unknown]

NARRATIVE: CASE EVENT DATE: 20110318
